FAERS Safety Report 24042888 (Version 1)
Quarter: 2024Q3

REPORT INFORMATION
  Report Type: Spontaneous
  Country: NP (occurrence: NP)
  Receive Date: 20240702
  Receipt Date: 20240702
  Transmission Date: 20241017
  Serious: Yes (Death)
  Sender: PFIZER
  Company Number: NP-PFIZER INC-PV202400086067

PATIENT
  Age: 71 Year
  Sex: Male

DRUGS (1)
  1. SUTENT [Suspect]
     Active Substance: SUNITINIB MALATE
     Indication: Renal cell carcinoma
     Dosage: 50MG (1 X 50MG CAPSULE)

REACTIONS (1)
  - Death [Fatal]

NARRATIVE: CASE EVENT DATE: 20240609
